FAERS Safety Report 9520683 (Version 2)
Quarter: 2015Q1

REPORT INFORMATION
  Report Type: Spontaneous
  Country: US (occurrence: US)
  Receive Date: 20130913
  Receipt Date: 20150223
  Transmission Date: 20150721
  Serious: Yes (Hospitalization, Other)
  Sender: FDA-Public Use
  Company Number: US-JNJFOC-20130905666

PATIENT
  Sex: Female
  Weight: 58.97 kg

DRUGS (3)
  1. TYLENOL ANALGESIC UNKNOWN [Suspect]
     Active Substance: ACETAMINOPHEN
     Indication: NASOPHARYNGITIS
     Dosage: 6-8 PER DAY EVERY 4 HOURS
     Route: 065
     Dates: start: 20111008, end: 20111013
  2. TYLENOL ANALGESIC UNKNOWN [Suspect]
     Active Substance: ACETAMINOPHEN
     Indication: MUSCLE SPASMS
     Dosage: 6-8 PER DAY EVERY 4 HOURS
     Route: 065
     Dates: start: 20111008, end: 20111013
  3. TYLENOL ANALGESIC UNKNOWN [Suspect]
     Active Substance: ACETAMINOPHEN
     Indication: INFLUENZA LIKE ILLNESS
     Dosage: 6-8 PER DAY EVERY 4 HOURS
     Route: 065
     Dates: start: 20111008, end: 20111013

REACTIONS (3)
  - Cholecystitis [Unknown]
  - Overdose [Unknown]
  - Hepatic failure [Unknown]
